FAERS Safety Report 5051585-6 (Version None)
Quarter: 2006Q3

REPORT INFORMATION
  Report Type: 
  Country: None (occurrence: None)
  Receive Date: 20060711
  Receipt Date: 20060623
  Transmission Date: 20061208
  Serious: Yes (Hospitalization, Other)
  Sender: FDA-Public Use
  Company Number: US200601002949

PATIENT
  Age: 41 Year
  Sex: Female
  Weight: 120.2 kg

DRUGS (23)
  1. ZYPREXA [Suspect]
     Indication: BIPOLAR DISORDER
     Dosage: SEE IMAGE
     Route: 048
     Dates: end: 20020501
  2. ZYPREXA [Suspect]
     Indication: BIPOLAR DISORDER
     Dosage: SEE IMAGE
     Route: 048
     Dates: start: 19990804
  3. REMERON [Concomitant]
  4. BUSPIRONE HCL [Concomitant]
  5. BUMETANIDE [Concomitant]
  6. PROCHLORPERAZINE TAB [Concomitant]
  7. NEURONTIN [Concomitant]
  8. AMBIEN [Concomitant]
  9. ALTACE [Concomitant]
  10. PROTONIX [Concomitant]
  11. ETODOLAC [Concomitant]
  12. DIAZEPAM [Concomitant]
  13. GEODON [Concomitant]
  14. OXYCODONE HCL [Concomitant]
  15. ZOLOFT [Concomitant]
  16. SYNTHROID [Concomitant]
  17. CELEBREX [Concomitant]
  18. TEMAZEPAM [Concomitant]
  19. ALPRAZOLAM [Concomitant]
  20. VIOXX [Concomitant]
  21. FUROSEMIDE [Concomitant]
  22. PREDNISONE [Concomitant]
  23. LITHIUM CARBONATE [Concomitant]

REACTIONS (24)
  - ABDOMINAL PAIN [None]
  - CHEST PAIN [None]
  - COLITIS [None]
  - DIABETES MELLITUS INADEQUATE CONTROL [None]
  - DIABETES MELLITUS NON-INSULIN-DEPENDENT [None]
  - DIARRHOEA [None]
  - DYSPNOEA [None]
  - GLYCOSYLATED HAEMOGLOBIN INCREASED [None]
  - HEPATIC STEATOSIS [None]
  - HYPERGLYCAEMIA [None]
  - HYPOKALAEMIC SYNDROME [None]
  - IRRITABLE BOWEL SYNDROME [None]
  - MICROALBUMINURIA [None]
  - NAUSEA [None]
  - NEUROPATHY PERIPHERAL [None]
  - OEDEMA PERIPHERAL [None]
  - POLLAKIURIA [None]
  - PRESCRIBED OVERDOSE [None]
  - RECTAL HAEMORRHAGE [None]
  - REFUSAL OF TREATMENT BY PATIENT [None]
  - RENAL FAILURE CHRONIC [None]
  - VISION BLURRED [None]
  - VOMITING [None]
  - WEIGHT INCREASED [None]
